FAERS Safety Report 12059342 (Version 1)
Quarter: 2016Q1

REPORT INFORMATION
  Report Type: Spontaneous
  Country: US (occurrence: US)
  Receive Date: 20160210
  Receipt Date: 20160210
  Transmission Date: 20160526
  Serious: No
  Sender: FDA-Public Use
  Company Number: US-PFIZER INC-2016015417

PATIENT
  Age: 65 Year
  Sex: Female

DRUGS (4)
  1. XELJANZ [Suspect]
     Active Substance: TOFACITINIB CITRATE
     Indication: RHEUMATOID ARTHRITIS
     Dosage: 5 MG, 2X/DAY
     Route: 048
     Dates: start: 20151109
  2. HYDROCODONE-ACETAMINOP [Concomitant]
     Dosage: UNK
  3. MUPIROCIN. [Concomitant]
     Active Substance: MUPIROCIN
     Dosage: UNK (2%)
  4. AZELASTINE HCL [Concomitant]
     Active Substance: AZELASTINE HYDROCHLORIDE
     Dosage: UNK

REACTIONS (1)
  - Musculoskeletal stiffness [Not Recovered/Not Resolved]
